FAERS Safety Report 16342141 (Version 1)
Quarter: 2019Q2

REPORT INFORMATION
  Report Type: Spontaneous
  Country: US (occurrence: US)
  Receive Date: 20190522
  Receipt Date: 20190522
  Transmission Date: 20190711
  Serious: Yes (Other)
  Sender: FDA-Public Use
  Company Number: US-009507513-1905USA007225

PATIENT
  Age: 80 Year
  Sex: Male

DRUGS (1)
  1. KEYTRUDA [Suspect]
     Active Substance: PEMBROLIZUMAB
     Indication: MALIGNANT MELANOMA STAGE III
     Dosage: 2 MG/KG, EVERY THREE WEEKS
     Route: 042

REACTIONS (2)
  - Immune-mediated adverse reaction [Recovering/Resolving]
  - Dermatitis psoriasiform [Recovering/Resolving]
